FAERS Safety Report 21007067 (Version 12)
Quarter: 2025Q2

REPORT INFORMATION
  Report Type: Report from Study
  Country: US (occurrence: US)
  Receive Date: 20220625
  Receipt Date: 20250620
  Transmission Date: 20250717
  Serious: Yes (Hospitalization, Other)
  Sender: TAKEDA
  Company Number: US-TAKEDA-2022TUS023989

PATIENT
  Sex: Male
  Weight: 58 kg

DRUGS (19)
  1. TEDUGLUTIDE [Suspect]
     Active Substance: TEDUGLUTIDE
     Indication: Short-bowel syndrome
     Dosage: 0.265 MILLILITER, QD
     Dates: start: 202104
  2. TEDUGLUTIDE [Suspect]
     Active Substance: TEDUGLUTIDE
     Dosage: 0.3 MILLILITER, QD
  3. TEDUGLUTIDE [Suspect]
     Active Substance: TEDUGLUTIDE
     Dosage: 0.3 MILLILITER, QD
  4. TEDUGLUTIDE [Suspect]
     Active Substance: TEDUGLUTIDE
     Dosage: 0.3 MILLILITER, QD
  5. TEDUGLUTIDE [Suspect]
     Active Substance: TEDUGLUTIDE
     Dosage: 3 MILLIGRAM, QD
  6. TEDUGLUTIDE [Suspect]
     Active Substance: TEDUGLUTIDE
     Dosage: 3 MILLIGRAM, QD
  7. TEDUGLUTIDE [Suspect]
     Active Substance: TEDUGLUTIDE
     Dosage: 3 MILLIGRAM, QD
  8. VITAMINS [Concomitant]
     Active Substance: VITAMINS
  9. COPPER [Concomitant]
     Active Substance: COPPER
  10. ZINC [Concomitant]
     Active Substance: ZINC
  11. VITAMIN D3 [Concomitant]
     Active Substance: CHOLECALCIFEROL
  12. SODIUM CITRATE [Concomitant]
     Active Substance: SODIUM CITRATE
  13. Omega 3 fish oil + vitamin d [Concomitant]
  14. OMEPRAZOLE [Concomitant]
     Active Substance: OMEPRAZOLE
  15. CALCIUM [Concomitant]
     Active Substance: CALCIUM
  16. MAGNESIUM OXIDE [Concomitant]
     Active Substance: MAGNESIUM OXIDE
  17. METRONIDAZOLE [Concomitant]
     Active Substance: METRONIDAZOLE
  18. TPN [Concomitant]
     Active Substance: AMINO ACIDS\DEXTROSE\ELECTROLYTES NOS\SOYBEAN OIL
  19. CITRIC ACID MONOHYDRATE\SODIUM CITRATE [Concomitant]
     Active Substance: CITRIC ACID MONOHYDRATE\SODIUM CITRATE

REACTIONS (16)
  - Vascular device infection [Unknown]
  - Gastric infection [Not Recovered/Not Resolved]
  - Gastrointestinal disorder [Unknown]
  - Device breakage [Unknown]
  - Decreased appetite [Unknown]
  - Lack of injection site rotation [Not Recovered/Not Resolved]
  - Weight abnormal [Unknown]
  - Weight gain poor [Unknown]
  - Weight decreased [Unknown]
  - Feeding disorder [Unknown]
  - Malaise [Unknown]
  - Personal relationship issue [Unknown]
  - Product use complaint [Unknown]
  - Inappropriate schedule of product administration [Unknown]
  - Injection site induration [Not Recovered/Not Resolved]
  - Appetite disorder [Unknown]
